FAERS Safety Report 18339731 (Version 4)
Quarter: 2021Q3

REPORT INFORMATION
  Report Type: Spontaneous
  Country: US (occurrence: US)
  Receive Date: 20201002
  Receipt Date: 20210719
  Transmission Date: 20211014
  Serious: No
  Sender: FDA-Public Use
  Company Number: US-PFIZER INC-2020378166

PATIENT
  Age: 45 Year
  Sex: Female

DRUGS (2)
  1. XELJANZ XR [Suspect]
     Active Substance: TOFACITINIB CITRATE
     Indication: RHEUMATOID ARTHRITIS
     Dosage: 11 MG, DAILY
     Route: 048
     Dates: start: 202008
  2. XELJANZ XR [Suspect]
     Active Substance: TOFACITINIB CITRATE
     Indication: FIBROMYALGIA
     Dosage: 11 MG, 1X/DAY
     Route: 048
     Dates: start: 2020

REACTIONS (5)
  - Drug ineffective for unapproved indication [Unknown]
  - Pain [Unknown]
  - Off label use [Unknown]
  - Memory impairment [Unknown]
  - Product dose omission issue [Unknown]

NARRATIVE: CASE EVENT DATE: 2020
